FAERS Safety Report 13870460 (Version 2)
Quarter: 2017Q3

REPORT INFORMATION
  Report Type: Spontaneous
  Country: US (occurrence: US)
  Receive Date: 20170815
  Receipt Date: 20170901
  Transmission Date: 20171127
  Serious: Yes (Disabling)
  Sender: FDA-Public Use
  Company Number: US-009507513-1708USA006421

PATIENT
  Age: 48 Year
  Sex: Male

DRUGS (2)
  1. ZOSTAVAX [Suspect]
     Active Substance: VARICELLA-ZOSTER VIRUS STRAIN OKA/MERCK LIVE ANTIGEN
  2. STERILE DILUENT [Suspect]
     Active Substance: WATER

REACTIONS (2)
  - Herpes zoster [Recovering/Resolving]
  - Secondary transmission [Recovering/Resolving]

NARRATIVE: CASE EVENT DATE: 201611
